FAERS Safety Report 20150886 (Version 5)
Quarter: 2024Q2

REPORT INFORMATION
  Report Type: Report from Study
  Country: DE (occurrence: DE)
  Receive Date: 20211206
  Receipt Date: 20240613
  Transmission Date: 20240716
  Serious: Yes (Death, Other)
  Sender: FDA-Public Use
  Company Number: DE-NOVARTISPH-NVSC2021DE277399

PATIENT
  Sex: Female
  Weight: 78 kg

DRUGS (7)
  1. KISQALI [Suspect]
     Active Substance: RIBOCICLIB
     Indication: Breast cancer metastatic
     Dosage: 600 MG, QD (SCHEMA 21 DAYS INTAKE THEN 7 DAYS PAUSE)
     Route: 048
     Dates: start: 20191016, end: 20200818
  2. KISQALI [Suspect]
     Active Substance: RIBOCICLIB
     Dosage: 600 MG, QD (SCHEMA 21 DAYS INTAKE THEN 7 DAYS PAUSE)
     Route: 048
     Dates: start: 20200826, end: 20210406
  3. KISQALI [Suspect]
     Active Substance: RIBOCICLIB
     Dosage: 600 MG, QD (SCHEMA 21 DAYS INTAKE THEN 7 DAYS PAUSE)
     Route: 048
     Dates: start: 20210414, end: 20210824
  4. LETROZOLE [Suspect]
     Active Substance: LETROZOLE
     Indication: Breast cancer metastatic
     Dosage: 2.5 MG, QD
     Route: 048
     Dates: start: 20200923, end: 20210503
  5. FULVESTRANT [Suspect]
     Active Substance: FULVESTRANT
     Indication: Breast cancer metastatic
     Dosage: 500 MG, Q2W (DAILY DOSE), EVERY TWO WEEKS)
     Route: 030
     Dates: start: 20191016, end: 20191112
  6. FULVESTRANT [Suspect]
     Active Substance: FULVESTRANT
     Dosage: 500 MG, Q4W (DAILY DOSE), EVERY FOUR WEEKS)
     Route: 030
     Dates: start: 20191113, end: 20200922
  7. FULVESTRANT [Suspect]
     Active Substance: FULVESTRANT
     Dosage: 500 MG, Q2W (DAILY DOSE), EVERY TWO WEEKS)
     Route: 030
     Dates: start: 20210504, end: 20210824

REACTIONS (8)
  - Sepsis [Fatal]
  - Peritonitis [Fatal]
  - Multiple organ dysfunction syndrome [Fatal]
  - Gastroenteritis [Fatal]
  - Spontaneous bacterial peritonitis [Fatal]
  - Ileus [Fatal]
  - Impaired gastric emptying [Fatal]
  - Ileus paralytic [Fatal]

NARRATIVE: CASE EVENT DATE: 20211129
